FAERS Safety Report 25080050 (Version 2)
Quarter: 2025Q4

REPORT INFORMATION
  Report Type: Spontaneous
  Country: US (occurrence: US)
  Receive Date: 20250314
  Receipt Date: 20251007
  Transmission Date: 20260118
  Serious: No
  Sender: SANOFI AVENTIS
  Company Number: US-SA-2025SA074594

PATIENT
  Age: 59 Year
  Sex: Female
  Weight: 88 kg

DRUGS (2)
  1. DUPIXENT [Suspect]
     Active Substance: DUPILUMAB
     Indication: Idiopathic urticaria
     Dosage: 600 MG, 1X
     Route: 058
     Dates: start: 202503, end: 202503
  2. DUPIXENT [Suspect]
     Active Substance: DUPILUMAB
     Indication: Mechanical urticaria
     Dosage: 300 MG, QOW
     Route: 058
     Dates: start: 2025

REACTIONS (2)
  - Off label use [Unknown]
  - Product use in unapproved indication [Unknown]

NARRATIVE: CASE EVENT DATE: 20250301
